FAERS Safety Report 21590414 (Version 1)
Quarter: 2022Q4

REPORT INFORMATION
  Report Type: Spontaneous
  Country: US (occurrence: None)
  Receive Date: 20221111
  Receipt Date: 20221111
  Transmission Date: 20230113
  Serious: Yes (Life-Threatening, Hospitalization)
  Sender: FDA-Public Use
  Company Number: None

PATIENT
  Age: 51 Year
  Sex: Male
  Weight: 137.8 kg

DRUGS (2)
  1. JARDIANCE [Suspect]
     Active Substance: EMPAGLIFLOZIN
     Indication: Diabetes mellitus
     Dosage: FREQUENCY : DAILY;?
     Route: 048
     Dates: start: 20220922, end: 20221103
  2. Methylprednisolone Dosepak [Concomitant]
     Dates: start: 20221025, end: 20221031

REACTIONS (4)
  - Scrotal pain [None]
  - Scrotal swelling [None]
  - Sepsis [None]
  - Fournier^s gangrene [None]

NARRATIVE: CASE EVENT DATE: 20221103
